FAERS Safety Report 7884602-6 (Version None)
Quarter: 2011Q4

REPORT INFORMATION
  Report Type: 
  Country: None (occurrence: None)
  Receive Date: 20111102
  Receipt Date: 20111026
  Transmission Date: 20120403
  Serious: Yes (Hospitalization)
  Sender: FDA-Public Use
  Company Number: FR-PFIZER INC-2011260362

PATIENT
  Age: 90 Year
  Sex: Female

DRUGS (3)
  1. SULFASALAZINE [Suspect]
     Dosage: 500 MG, 4X/DAY
     Route: 048
     Dates: start: 20100101, end: 20110922
  2. OXAZEPAM [Suspect]
     Dosage: 10 MG, 1X/DAY
     Route: 048
     Dates: start: 20110401, end: 20110920
  3. ATHYMIL [Suspect]
     Dosage: 10 MG, 1X/DAY
     Route: 048
     Dates: start: 20110401, end: 20110920

REACTIONS (2)
  - LUNG INFECTION [None]
  - NEUTROPENIA [None]
